FAERS Safety Report 16652530 (Version 1)
Quarter: 2019Q3

REPORT INFORMATION
  Report Type: Spontaneous
  Country: CN (occurrence: CN)
  Receive Date: 20190731
  Receipt Date: 20190731
  Transmission Date: 20191004
  Serious: Yes (Hospitalization, Other)
  Sender: FDA-Public Use
  Company Number: CN-SCILEX PHARMACEUTICALS INC.-2019SCX00060

PATIENT
  Age: 58 Year
  Sex: Female

DRUGS (2)
  1. LIDOCAINE. [Suspect]
     Active Substance: LIDOCAINE
     Indication: NEURALGIA
     Dosage: 9.5 ML
  2. DIPROSPAN [Concomitant]
     Active Substance: BETAMETHASONE DIPROPIONATE\BETAMETHASONE SODIUM PHOSPHATE
     Indication: NEURALGIA
     Dosage: 0.5 ML

REACTIONS (6)
  - Asthenia [Recovered/Resolved]
  - Dizziness [Recovered/Resolved]
  - Palpitations [Recovered/Resolved]
  - Nausea [Recovered/Resolved]
  - Diplegia [Recovered/Resolved]
  - Spinal anaesthesia [Recovered/Resolved]
